FAERS Safety Report 21082724 (Version 5)
Quarter: 2024Q2

REPORT INFORMATION
  Report Type: Other
  Country: JP (occurrence: JP)
  Receive Date: 20220714
  Receipt Date: 20240404
  Transmission Date: 20240715
  Serious: Yes (Death, Life-Threatening, Other)
  Sender: FDA-Public Use
  Company Number: JP-CHUGAI-2022014021

PATIENT
  Age: 57 Year
  Sex: Male
  Weight: 68.3 kg

DRUGS (13)
  1. POLIVY [Suspect]
     Active Substance: POLATUZUMAB VEDOTIN-PIIQ
     Indication: Diffuse large B-cell lymphoma
     Route: 041
     Dates: start: 20210907, end: 20211220
  2. ACTEMRA [Suspect]
     Active Substance: TOCILIZUMAB
     Indication: Cytokine release syndrome
     Route: 065
  3. KYMRIAH [Suspect]
     Active Substance: TISAGENLECLEUCEL
     Indication: Diffuse large B-cell lymphoma
     Dosage: 4.5X10^8
     Route: 041
     Dates: start: 20210517
  4. BENDAMUSTINE HYDROCHLORIDE [Suspect]
     Active Substance: BENDAMUSTINE HYDROCHLORIDE
     Indication: Diffuse large B-cell lymphoma
     Dosage: UNK
     Route: 041
     Dates: start: 20210907, end: 20211221
  5. RITUXIMAB [Suspect]
     Active Substance: RITUXIMAB
     Indication: Diffuse large B-cell lymphoma
     Dosage: UNK
     Route: 041
     Dates: start: 20210906, end: 20211220
  6. FLUDARABINE PHOSPHATE [Concomitant]
     Active Substance: FLUDARABINE PHOSPHATE
     Dosage: UNK
     Route: 065
     Dates: start: 20210512
  7. CYCLOPHOSPHAMIDE [Concomitant]
     Active Substance: CYCLOPHOSPHAMIDE
     Dosage: UNK
     Route: 065
     Dates: start: 20210512
  8. ACYCLOVIR [Concomitant]
     Active Substance: ACYCLOVIR
     Indication: Infection prophylaxis
     Dosage: UNK
     Route: 065
     Dates: end: 20220111
  9. SULFAMETHOXAZOLE\TRIMETHOPRIM [Concomitant]
     Active Substance: SULFAMETHOXAZOLE\TRIMETHOPRIM
     Indication: Infection prophylaxis
     Dosage: UNK
     Route: 065
     Dates: end: 20220111
  10. FLUCONAZOLE [Concomitant]
     Active Substance: FLUCONAZOLE
     Indication: Infection prophylaxis
     Dosage: UNK
     Route: 065
     Dates: start: 20211111, end: 20211111
  11. LEVOFLOXACIN HEMIHYDRATE [Concomitant]
     Active Substance: LEVOFLOXACIN
     Indication: Infection prophylaxis
     Dosage: UNK
     Route: 065
     Dates: start: 20211111, end: 20211121
  12. FEBUXOSTAT [Concomitant]
     Active Substance: FEBUXOSTAT
     Indication: Prophylaxis
     Dosage: 60MG/DAY
     Route: 065
  13. RASBURICASE [Concomitant]
     Active Substance: RASBURICASE
     Indication: Prophylaxis
     Dosage: 0.2 MILLIGRAM/KILOGRAM

REACTIONS (5)
  - Tumour lysis syndrome [Recovered/Resolved]
  - Neutrophil count decreased [Recovered/Resolved]
  - Disease progression [Fatal]
  - Platelet count decreased [Not Recovered/Not Resolved]
  - Haemoglobin decreased [Not Recovered/Not Resolved]

NARRATIVE: CASE EVENT DATE: 20210817
